FAERS Safety Report 17489467 (Version 9)
Quarter: 2022Q1

REPORT INFORMATION
  Report Type: Report from Study
  Country: GB (occurrence: GB)
  Receive Date: 20200303
  Receipt Date: 20220321
  Transmission Date: 20220424
  Serious: Yes (Hospitalization)
  Sender: FDA-Public Use
  Company Number: GB-ROCHE-1745258

PATIENT
  Age: 45 Year
  Sex: Female

DRUGS (39)
  1. DOCETAXEL [Suspect]
     Active Substance: DOCETAXEL
     Indication: Breast cancer metastatic
     Dosage: 140 MILLIGRAM, Q3W
     Route: 042
     Dates: start: 20160316
  2. PERTUZUMAB [Suspect]
     Active Substance: PERTUZUMAB
     Indication: Breast cancer metastatic
     Dosage: 840 MILLIGRAM
     Route: 042
     Dates: start: 20160317, end: 20160317
  3. PERTUZUMAB [Suspect]
     Active Substance: PERTUZUMAB
     Dosage: 420 MILLIGRAM, Q3W
     Route: 042
     Dates: start: 20160406
  4. HERCEPTIN [Suspect]
     Active Substance: TRASTUZUMAB
     Indication: Breast cancer metastatic
     Dosage: 430.5 MILLIGRAM, Q3W (MAINTENANCE DOSE (6 MG/KG))
     Route: 041
     Dates: start: 20160406
  5. HERCEPTIN [Suspect]
     Active Substance: TRASTUZUMAB
     Dosage: 577.5 MILLIGRAM (LOADING DOSE (8 MG/KG))
     Route: 041
     Dates: start: 20160317, end: 20160317
  6. COCODAMOL [Concomitant]
     Active Substance: ACETAMINOPHEN\CODEINE PHOSPHATE
     Indication: Bone pain
     Dosage: 30 MILLIGRAM
     Route: 048
  7. DEXAMETHASONE [Concomitant]
     Active Substance: DEXAMETHASONE
     Indication: Prophylaxis
     Dosage: 8 MILLIGRAM, QD
     Route: 048
     Dates: start: 20160407
  8. DEXAMETHASONE [Concomitant]
     Active Substance: DEXAMETHASONE
     Indication: Dizziness
     Dosage: 1 MILLIGRAM, QD
     Route: 048
     Dates: start: 20160416
  9. DEXAMETHASONE [Concomitant]
     Active Substance: DEXAMETHASONE
     Dosage: 8 MILLIGRAM, QD
     Route: 048
     Dates: start: 20160317, end: 20160320
  10. DEXAMETHASONE [Concomitant]
     Active Substance: DEXAMETHASONE
     Dosage: 4 MILLIGRAM, 0.5 DAY
     Route: 048
     Dates: start: 20170914, end: 20170917
  11. DEXAMETHASONE [Concomitant]
     Active Substance: DEXAMETHASONE
     Dosage: 2 MILLIGRAM, 0.5 DAY
     Route: 048
     Dates: start: 20170918
  12. DEXAMETHASONE [Concomitant]
     Active Substance: DEXAMETHASONE
     Dosage: 4 MILLIGRAM, QD
     Route: 048
     Dates: start: 20170830, end: 20170914
  13. DEXAMETHASONE [Concomitant]
     Active Substance: DEXAMETHASONE
     Dosage: 8 MILLIGRAM, QD
     Route: 048
     Dates: start: 20160320
  14. CHOLECALCIFEROL [Concomitant]
     Active Substance: CHOLECALCIFEROL
     Dosage: 800 INTERNATIONAL UNIT, QD
     Route: 048
     Dates: start: 20160330
  15. CYCLIZINE [Concomitant]
     Active Substance: CYCLIZINE
     Dosage: 50 MILLIGRAM (0.33 DAYS)
     Route: 042
     Dates: start: 20160406, end: 20160406
  16. DERMOL [Concomitant]
     Active Substance: BENZALKONIUM CHLORIDE\CHLORHEXIDINE HYDROCHLORIDE\ISOPROPYL MYRISTATE\PARAFFIN
     Indication: Dermatitis
     Dosage: UNK
     Route: 061
     Dates: start: 20160330
  17. METOCLOPRAMIDE [Concomitant]
     Active Substance: METOCLOPRAMIDE
     Indication: Prophylaxis
     Dosage: 10 MILLIGRAM
     Route: 042
     Dates: start: 20160316, end: 20160316
  18. DICLOFENAC [Concomitant]
     Active Substance: DICLOFENAC
     Indication: Bone pain
     Dosage: 150 MILLIGRAM, QD  (75 MG, 0.5 DAY)
     Route: 048
  19. DICLOFENAC [Concomitant]
     Active Substance: DICLOFENAC
     Dosage: 75 MILLIGRAM, QD
     Route: 048
  20. DICLOFENAC [Concomitant]
     Active Substance: DICLOFENAC
     Dosage: 75 MILLIGRAM, (0.5) DAY
     Route: 048
  21. DICLOFENAC [Concomitant]
     Active Substance: DICLOFENAC
     Dosage: 150 MILLIGRAM, QD  (75 MG, 0.5 DAY)
     Route: 048
  22. ZOLEDRONIC ACID [Concomitant]
     Active Substance: ZOLEDRONIC ACID
     Dosage: 4 MILLIGRAM, Q3W
     Route: 042
     Dates: start: 20160317
  23. ACETAMINOPHEN [Concomitant]
     Active Substance: ACETAMINOPHEN
     Indication: Bone pain
     Dosage: 1 GRAM
     Route: 048
  24. DENOSUMAB [Concomitant]
     Active Substance: DENOSUMAB
     Dosage: 120 MILLIGRAM, MONTHLY
     Route: 042
     Dates: start: 20160727
  25. CALCIUM CARBONATE\CHOLECALCIFEROL [Concomitant]
     Active Substance: CALCIUM CARBONATE\CHOLECALCIFEROL
     Indication: Prophylaxis
     Dosage: 1 DOSAGE FORM, QD
     Route: 048
     Dates: start: 20160317
  26. CYCLIZINE [Concomitant]
     Active Substance: CYCLIZINE
     Dosage: 150 MILLIGRAM, QD
     Route: 048
  27. CYCLIZINE [Concomitant]
     Active Substance: CYCLIZINE
     Dosage: 50 MILLIGRAM 0.33 DAY (150 MG, QD )
     Route: 048
  28. NEFOPAM [Concomitant]
     Active Substance: NEFOPAM
     Dosage: 90 MILLIGRAM, QD
     Route: 048
     Dates: start: 20160907
  29. NEFOPAM [Concomitant]
     Active Substance: NEFOPAM
     Dosage: 30 MILLIGRAM, 0.33 DAY
     Route: 048
     Dates: start: 20160907
  30. BUTYLSCOPOLAMINE BROMIDE [Concomitant]
     Active Substance: BUTYLSCOPOLAMINE BROMIDE
     Dosage: 10 MILLIGRAM
     Route: 048
     Dates: start: 20170201
  31. AMITRIPTYLINE [Concomitant]
     Active Substance: AMITRIPTYLINE
     Dosage: 25 MILLIGRAM
     Route: 048
     Dates: start: 20150215
  32. DEXAMETHASONE [Concomitant]
     Active Substance: DEXAMETHASONE
     Indication: Prophylaxis
     Dosage: 8 MILLIGRAM, QD
     Route: 042
     Dates: start: 20170913, end: 20170913
  33. GABAPENTIN [Concomitant]
     Active Substance: GABAPENTIN
     Dosage: 300 MILLIGRAM, BID (0.5 DAY)
     Route: 048
     Dates: start: 20170215
  34. VITAMIN B6 [Concomitant]
     Active Substance: PYRIDOXINE HYDROCHLORIDE
     Dosage: 1.3 MILLIGRAM, QD
     Route: 048
     Dates: start: 20170215
  35. CYCLIZINE [Concomitant]
     Active Substance: CYCLIZINE
     Dosage: 50 MILLIGRAM, TID (50 MG,0.33 DAY)
     Route: 042
     Dates: start: 20160406, end: 20160406
  36. CYCLIZINE [Concomitant]
     Active Substance: CYCLIZINE
     Dosage: UNK
  37. METOCLOPRAMIDE [Concomitant]
     Active Substance: METOCLOPRAMIDE
     Indication: Prophylaxis
     Dosage: 10 MILLIGRAM
     Route: 048
     Dates: start: 20170201
  38. FILGRASTIM [Concomitant]
     Active Substance: FILGRASTIM
     Indication: Product used for unknown indication
     Dosage: 300 MICROGRAM
     Route: 058
     Dates: start: 20160317, end: 20160321
  39. FILGRASTIM [Concomitant]
     Active Substance: FILGRASTIM
     Dosage: 300 MICROGRAM
     Route: 058
     Dates: start: 20160407

REACTIONS (10)
  - Nasal discomfort [Not Recovered/Not Resolved]
  - Acute kidney injury [Recovered/Resolved]
  - Mouth ulceration [Recovering/Resolving]
  - Vomiting [Recovered/Resolved]
  - Urinary tract infection [Recovered/Resolved]
  - Diarrhoea [Recovered/Resolved]
  - Sepsis [Recovered/Resolved]
  - Naevus haemorrhage [Unknown]
  - Bone pain [Not Recovered/Not Resolved]
  - Dermatitis [Recovered/Resolved]

NARRATIVE: CASE EVENT DATE: 20160330
